FAERS Safety Report 8359509-0 (Version None)
Quarter: 2012Q2

REPORT INFORMATION
  Report Type: 
  Country: None (occurrence: None)
  Receive Date: 20120515
  Receipt Date: 20120503
  Transmission Date: 20120825
  Serious: Yes (Other)
  Sender: FDA-Public Use
  Company Number: US-SANOFI-AVENTIS-2012SA031591

PATIENT
  Sex: Male
  Weight: 113.3 kg

DRUGS (4)
  1. APIDRA [Suspect]
     Dosage: PER SLIDING SCALE
     Route: 058
     Dates: start: 20090101
  2. SOLOSTAR [Suspect]
     Dates: start: 20090101
  3. LANTUS [Suspect]
     Dosage: DOSE:100 UNIT(S)
     Route: 058
  4. LANTUS [Suspect]
     Dosage: IN THE MORNING DOSE:70 UNIT(S)
     Route: 058

REACTIONS (3)
  - WEIGHT DECREASED [None]
  - DIABETES MELLITUS INADEQUATE CONTROL [None]
  - PANCREATIC DISORDER [None]
